FAERS Safety Report 23204882 (Version 3)
Quarter: 2024Q1

REPORT INFORMATION
  Report Type: Report from Study
  Country: PH (occurrence: PH)
  Receive Date: 20231120
  Receipt Date: 20240307
  Transmission Date: 20240410
  Serious: Yes (Death)
  Sender: FDA-Public Use
  Company Number: PH-OTSUKA-2023_030258

PATIENT
  Age: 60 Year
  Sex: Male

DRUGS (1)
  1. TOLVAPTAN [Suspect]
     Active Substance: TOLVAPTAN
     Indication: Fluid retention
     Dosage: 15 MG
     Route: 048

REACTIONS (2)
  - Cardiac arrest [Fatal]
  - Product use in unapproved indication [Unknown]

NARRATIVE: CASE EVENT DATE: 20231028
